FAERS Safety Report 23403412 (Version 1)
Quarter: 2024Q1

REPORT INFORMATION
  Report Type: Spontaneous
  Country: ES (occurrence: None)
  Receive Date: 20240116
  Receipt Date: 20240116
  Transmission Date: 20240410
  Serious: Yes (Other)
  Sender: FDA-Public Use
  Company Number: 2024A006989

PATIENT
  Age: 33 Year
  Sex: Male

DRUGS (1)
  1. SEROQUEL [Suspect]
     Active Substance: QUETIAPINE FUMARATE
     Indication: Anxiety
     Dosage: 1 PILL AT NIGHT
     Route: 048
     Dates: start: 20220216

REACTIONS (5)
  - Myoclonus [Recovering/Resolving]
  - Anxiety [Recovering/Resolving]
  - Cramp-fasciculation syndrome [Recovering/Resolving]
  - Blepharospasm [Recovering/Resolving]
  - Muscle rigidity [Recovering/Resolving]

NARRATIVE: CASE EVENT DATE: 20231228
